FAERS Safety Report 8991337 (Version 1)
Quarter: 2012Q4

REPORT INFORMATION
  Report Type: 
  Country: EC (occurrence: EC)
  Receive Date: 20121230
  Receipt Date: 20121230
  Transmission Date: 20130627
  Serious: Yes (Other)
  Sender: FDA-Public Use
  Company Number: PHHY2012EC119972

PATIENT
  Age: 65 None
  Sex: Female

DRUGS (1)
  1. ACLASTA [Suspect]
     Indication: OSTEOPOROSIS
     Dosage: 5 mg, yearly
     Route: 042
     Dates: start: 20090326

REACTIONS (3)
  - Breast cancer [Unknown]
  - Macular degeneration [Not Recovered/Not Resolved]
  - Fall [Unknown]
